FAERS Safety Report 8925060 (Version 5)
Quarter: 2013Q1

REPORT INFORMATION
  Report Type: Report from Study
  Country: GB (occurrence: GB)
  Receive Date: 20121126
  Receipt Date: 20130213
  Transmission Date: 20140127
  Serious: Yes (Other)
  Sender: FDA-Public Use
  Company Number: GB-ROCHE-1159593

PATIENT
  Age: 24 Year
  Sex: Male
  Weight: 87.4 kg

DRUGS (2)
  1. VEMURAFENIB [Suspect]
     Indication: MALIGNANT MELANOMA
     Dosage: DATE OF LAST DOSE PRIOR TO SAE: 04/OCT/2012
     Route: 048
     Dates: start: 20120116
  2. CO-CODAMOL [Concomitant]
     Dosage: 30/500 MG TOTAL DAILY DOSE
     Route: 065
     Dates: start: 20120105

REACTIONS (1)
  - Mycosis fungoides [Recovered/Resolved]
